FAERS Safety Report 8277430-3 (Version None)
Quarter: 2012Q2

REPORT INFORMATION
  Report Type: 
  Country: None (occurrence: None)
  Receive Date: 20120412
  Receipt Date: 20120330
  Transmission Date: 20120825
  Serious: Yes (Other)
  Sender: FDA-Public Use
  Company Number: US-PFIZER INC-2012082881

PATIENT
  Sex: Female

DRUGS (2)
  1. LYRICA [Suspect]
     Dosage: 75 MG, 3X/DAY
  2. PROTONIX [Suspect]
     Dosage: 40 MG, 1X/DAY

REACTIONS (11)
  - CHRONIC OBSTRUCTIVE PULMONARY DISEASE [None]
  - DYSPNOEA [None]
  - BANKRUPTCY [None]
  - ASTHMA [None]
  - HYPERTENSION [None]
  - ASTHENIA [None]
  - MALAISE [None]
  - FATIGUE [None]
  - RHEUMATOID ARTHRITIS [None]
  - PAIN [None]
  - ADRENAL INSUFFICIENCY [None]
